FAERS Safety Report 4806775-1 (Version None)
Quarter: 2005Q4

REPORT INFORMATION
  Report Type: 
  Country: None (occurrence: None)
  Receive Date: 20051019
  Receipt Date: 20051019
  Transmission Date: 20060501
  Serious: Yes (Life-Threatening)
  Sender: FDA-Public Use
  Company Number: None

PATIENT
  Age: 6 Year
  Sex: Female
  Weight: 20.8655 kg

DRUGS (1)
  1. AMOXICILLIN [Suspect]
     Indication: OTITIS MEDIA
     Dosage: 2 TSP TWICE A DAY PO
     Route: 048
     Dates: start: 20051013, end: 20051014

REACTIONS (6)
  - DRUG HYPERSENSITIVITY [None]
  - LIP HAEMORRHAGE [None]
  - LIP PAIN [None]
  - PYREXIA [None]
  - STEVENS-JOHNSON SYNDROME [None]
  - URTICARIA [None]
